FAERS Safety Report 4862555-2 (Version None)
Quarter: 2005Q4

REPORT INFORMATION
  Report Type: 
  Country: None (occurrence: None)
  Receive Date: 20051221
  Receipt Date: 20051129
  Transmission Date: 20060501
  Serious: Yes (Other)
  Sender: FDA-Public Use
  Company Number: JP-JPN-A20052915

PATIENT
  Age: 67 Year
  Sex: Male
  Weight: 48 kg

DRUGS (10)
  1. PAXIL [Suspect]
     Indication: DEPRESSION
     Route: 048
     Dates: start: 20050509
  2. GASTER [Suspect]
     Dosage: 20MG TWICE PER DAY
     Route: 042
     Dates: start: 20050722, end: 20050817
  3. GASTER [Suspect]
     Dosage: 20MG PER DAY
     Route: 048
     Dates: start: 20050818, end: 20050825
  4. LULLAN [Concomitant]
     Dosage: 4MG PER DAY
     Route: 048
     Dates: start: 20050809, end: 20051211
  5. PURSENNID [Concomitant]
     Indication: CONSTIPATION
     Dosage: 24MG PER DAY
     Route: 048
  6. MAGMITT [Concomitant]
     Dosage: 1.5G PER DAY
     Route: 048
  7. GASCON [Concomitant]
     Dosage: 120MG PER DAY
     Route: 048
  8. DAI-KENCHU-TO [Concomitant]
     Dosage: 15G PER DAY
     Route: 048
  9. COLONEL [Concomitant]
     Dosage: 3G PER DAY
     Route: 048
     Dates: start: 20051130
  10. SELENICA R [Concomitant]
     Dates: start: 20050624, end: 20050705

REACTIONS (4)
  - PANCYTOPENIA [None]
  - PLATELET COUNT DECREASED [None]
  - RED BLOOD CELL COUNT DECREASED [None]
  - WHITE BLOOD CELL COUNT DECREASED [None]
